FAERS Safety Report 18072232 (Version 1)
Quarter: 2020Q3

REPORT INFORMATION
  Report Type: Spontaneous
  Country: US (occurrence: US)
  Receive Date: 20200726
  Receipt Date: 20200726
  Transmission Date: 20201103
  Serious: Yes (Hospitalization)
  Sender: FDA-Public Use
  Company Number: None

PATIENT
  Age: 70 Year
  Sex: Female
  Weight: 94.95 kg

DRUGS (2)
  1. ASPIRIN 81MG [Concomitant]
     Active Substance: ASPIRIN
  2. PROPAFENONE HCL 225MG [Suspect]
     Active Substance: PROPAFENONE HYDROCHLORIDE

REACTIONS (7)
  - Pyrexia [None]
  - Fatigue [None]
  - Taste disorder [None]
  - Dyspnoea [None]
  - Cardiac failure [None]
  - Chills [None]
  - Atrial fibrillation [None]

NARRATIVE: CASE EVENT DATE: 20200721
